FAERS Safety Report 6028104-0 (Version None)
Quarter: 2009Q1

REPORT INFORMATION
  Report Type: 
  Country: None (occurrence: None)
  Receive Date: 20090102
  Receipt Date: 20090102
  Transmission Date: 20090719
  Serious: Yes (Life-Threatening, Other)
  Sender: FDA-Public Use
  Company Number: None

PATIENT
  Sex: Female
  Weight: 85.7298 kg

DRUGS (2)
  1. ARMOUR THYROID 60 MG 15MG FOREST HAVE USED ALL STRENGTHS TO 60MG [Suspect]
     Indication: AUTOIMMUNE THYROIDITIS
     Dosage: 60MG FOR 1 X A DAY OR 2 DIVIDED DOSES 30 + 30
     Dates: start: 20080801
  2. ARMOUR THYROID 60 MG 15MG FOREST HAVE USED ALL STRENGTHS TO 60MG [Suspect]
     Indication: HYPOTHYROIDISM
     Dosage: 60MG FOR 1 X A DAY OR 2 DIVIDED DOSES 30 + 30
     Dates: start: 20080801

REACTIONS (3)
  - PRODUCT CONTAMINATION [None]
  - PRODUCT QUALITY ISSUE [None]
  - URTICARIA [None]
